FAERS Safety Report 9692764 (Version 2)
Quarter: 2013Q4

REPORT INFORMATION
  Report Type: Report from Study
  Country: US (occurrence: US)
  Receive Date: 20131118
  Receipt Date: 20131126
  Transmission Date: 20140711
  Serious: Yes (Hospitalization)
  Sender: FDA-Public Use
  Company Number: US-009507513-1311USA005593

PATIENT
  Age: 78 Year
  Sex: Male
  Weight: 70.4 kg

DRUGS (2)
  1. VORINOSTAT [Suspect]
     Indication: PERIPHERAL T-CELL LYMPHOMA UNSPECIFIED
     Dosage: 200 MG, BID, ON DAYS 1-5 AND 8-12
     Route: 048
     Dates: start: 20131029
  2. ALISERTIB [Suspect]
     Indication: PERIPHERAL T-CELL LYMPHOMA UNSPECIFIED
     Dosage: 30 MG, BID, ON DAYS 1-3 AND 8-10
     Route: 048
     Dates: start: 20131029

REACTIONS (1)
  - Dyspnoea [Recovered/Resolved]
